FAERS Safety Report 7953172-6 (Version None)
Quarter: 2011Q4

REPORT INFORMATION
  Report Type: 
  Country: None (occurrence: None)
  Receive Date: 20111201
  Receipt Date: 20111118
  Transmission Date: 20120403
  Serious: Yes (Other)
  Sender: FDA-Public Use
  Company Number: US-ROCHE-792841

PATIENT
  Sex: Female
  Weight: 63.56 kg

DRUGS (1)
  1. ACCUTANE [Suspect]
     Indication: ACNE
     Route: 065
     Dates: start: 20000801, end: 20001231

REACTIONS (8)
  - COLON INJURY [None]
  - EMOTIONAL DISTRESS [None]
  - HEPATIC ENZYME INCREASED [None]
  - DRY SKIN [None]
  - COLITIS ULCERATIVE [None]
  - ALOPECIA [None]
  - INFLAMMATORY BOWEL DISEASE [None]
  - SKIN EXFOLIATION [None]
